FAERS Safety Report 15665436 (Version 1)
Quarter: 2018Q4

REPORT INFORMATION
  Report Type: Spontaneous
  Country: FR (occurrence: FR)
  Receive Date: 20181128
  Receipt Date: 20181128
  Transmission Date: 20190205
  Serious: Yes (Other)
  Sender: FDA-Public Use
  Company Number: FR-JNJFOC-20181128334

PATIENT
  Age: 35 Year
  Sex: Female
  Weight: 129 kg

DRUGS (12)
  1. REMICADE [Suspect]
     Active Substance: INFLIXIMAB
     Indication: ANKYLOSING SPONDYLITIS
     Route: 042
     Dates: start: 20070316
  2. COSENTYX [Suspect]
     Active Substance: SECUKINUMAB
     Indication: ANKYLOSING SPONDYLITIS
     Route: 058
     Dates: start: 20170724, end: 201803
  3. HUMIRA [Suspect]
     Active Substance: ADALIMUMAB
     Indication: ANKYLOSING SPONDYLITIS
     Route: 058
     Dates: start: 201101, end: 201104
  4. SIMPONI [Suspect]
     Active Substance: GOLIMUMAB
     Indication: ANKYLOSING SPONDYLITIS
     Route: 058
     Dates: start: 2013, end: 2014
  5. ESOMEPRAZOLE. [Concomitant]
     Active Substance: ESOMEPRAZOLE MAGNESIUM
     Route: 065
  6. CIMZIA [Suspect]
     Active Substance: CERTOLIZUMAB PEGOL
     Indication: ANKYLOSING SPONDYLITIS
     Route: 058
     Dates: start: 201104, end: 201303
  7. ENBREL [Suspect]
     Active Substance: ETANERCEPT
     Indication: ANKYLOSING SPONDYLITIS
     Route: 058
     Dates: start: 200805, end: 200807
  8. ROACTEMRA [Suspect]
     Active Substance: TOCILIZUMAB
     Indication: ANKYLOSING SPONDYLITIS
     Route: 041
     Dates: start: 20100518, end: 20101217
  9. KETOPROFEN. [Concomitant]
     Active Substance: KETOPROFEN
     Route: 065
  10. PARACETAMOL [Concomitant]
     Active Substance: ACETAMINOPHEN
     Route: 065
  11. STELARA [Suspect]
     Active Substance: USTEKINUMAB
     Indication: ANKYLOSING SPONDYLITIS
     Route: 058
     Dates: start: 20150119, end: 2017
  12. INEXIUM [Concomitant]
     Active Substance: ESOMEPRAZOLE
     Route: 065

REACTIONS (1)
  - Malignant melanoma in situ [Recovered/Resolved with Sequelae]

NARRATIVE: CASE EVENT DATE: 201803
